FAERS Safety Report 6789447-6 (Version None)
Quarter: 2010Q2

REPORT INFORMATION
  Report Type: 
  Country: None (occurrence: None)
  Receive Date: 20100623
  Receipt Date: 20100611
  Transmission Date: 20101027
  Serious: Yes (Hospitalization)
  Sender: FDA-Public Use
  Company Number: US-JNJCH-2010010935

PATIENT
  Age: 15 Year
  Sex: Female

DRUGS (6)
  1. CHILDREN'S BENADRYL ALLERGY [Suspect]
     Indication: PAIN
     Dosage: TEXT:UNKNOWN
     Route: 048
     Dates: start: 20100330, end: 20100501
  2. CHILDREN'S ZYRTEC ALLERGY [Suspect]
     Indication: PAIN
     Dosage: TEXT:UNKNOWN
     Route: 048
     Dates: start: 20100330
  3. MOTRIN [Suspect]
     Indication: DRUG USE FOR UNKNOWN INDICATION
     Dosage: TEXT:UNKNOWN
     Route: 048
  4. MOTRIN [Suspect]
     Dosage: TEXT:UNKNOWN
     Route: 048
  5. TYLENOL [Suspect]
     Indication: DRUG USE FOR UNKNOWN INDICATION
     Dosage: TEXT:UNKNOWN
     Route: 048
  6. CHILDREN'S BENADRYL ALLERGY [Suspect]
     Indication: PAIN
     Dosage: TEXT:UNKNOWN
     Route: 048
     Dates: start: 20100330, end: 20100428

REACTIONS (2)
  - PRODUCT QUALITY ISSUE [None]
  - VOMITING [None]
